FAERS Safety Report 10171132 (Version 1)
Quarter: 2014Q2

REPORT INFORMATION
  Report Type: Spontaneous
  Country: US (occurrence: None)
  Receive Date: 20140501
  Receipt Date: 20140501
  Transmission Date: 20141212
  Serious: No
  Sender: FDA-Public Use
  Company Number: PHEH2014US003482

PATIENT
  Age: 77 Year
  Sex: Female

DRUGS (6)
  1. ARCAPTA (INDACATEROL) UNKNOWN [Suspect]
  2. LISINOPRIL (LISINOPRIL) [Concomitant]
  3. METOPROLOL (METOPROLOL) [Concomitant]
  4. CLONIDINE (CLONIDINE) [Concomitant]
  5. LOVASTATIN (LOVASTATIN) [Concomitant]
  6. BABY ASPIRIN (ACETYLSALICYLIC ACID) [Concomitant]

REACTIONS (3)
  - Glossodynia [None]
  - Glossitis [None]
  - Oral candidiasis [None]
